FAERS Safety Report 4779747-3 (Version None)
Quarter: 2005Q3

REPORT INFORMATION
  Report Type: 
  Country: None (occurrence: None)
  Receive Date: 20050927
  Receipt Date: 20050915
  Transmission Date: 20060218
  Serious: Yes (Hospitalization)
  Sender: FDA-Public Use
  Company Number: PHHO2005US14586

PATIENT
  Age: 54 Year
  Sex: Female
  Weight: 123 kg

DRUGS (3)
  1. TEGASEROD [Suspect]
     Indication: DYSPEPSIA
     Dosage: 6 MG, QD
     Route: 048
     Dates: start: 20050316
  2. EFFEXOR XR [Concomitant]
     Indication: DEPRESSION
  3. SYNTHROID [Concomitant]
     Indication: HYPOTHYROIDISM

REACTIONS (4)
  - ABDOMINAL PAIN [None]
  - APPENDICECTOMY [None]
  - APPENDICITIS PERFORATED [None]
  - HALLUCINATIONS, MIXED [None]
